FAERS Safety Report 25363588 (Version 1)
Quarter: 2025Q2

REPORT INFORMATION
  Report Type: Spontaneous
  Country: FR (occurrence: FR)
  Receive Date: 20250527
  Receipt Date: 20250527
  Transmission Date: 20250716
  Serious: Yes (Hospitalization)
  Sender: EISAI
  Company Number: None

PATIENT
  Age: 25 Year
  Sex: Female
  Weight: 59 kg

DRUGS (5)
  1. LENVATINIB [Suspect]
     Active Substance: LENVATINIB
     Indication: Clear cell renal cell carcinoma
     Dates: start: 20250327, end: 20250404
  2. LENVATINIB [Suspect]
     Active Substance: LENVATINIB
     Dates: start: 20250407, end: 20250408
  3. LENVATINIB [Suspect]
     Active Substance: LENVATINIB
     Dates: start: 20250417, end: 20250424
  4. LENVATINIB [Suspect]
     Active Substance: LENVATINIB
     Dates: start: 20250429, end: 20250501
  5. KEYTRUDA [Suspect]
     Active Substance: PEMBROLIZUMAB
     Indication: Clear cell renal cell carcinoma
     Dates: start: 20250327

REACTIONS (2)
  - Thrombocytopenia [Recovered/Resolved]
  - Menometrorrhagia [Recovered/Resolved]

NARRATIVE: CASE EVENT DATE: 20250410
